FAERS Safety Report 9068742 (Version 1)
Quarter: 2013Q1

REPORT INFORMATION
  Report Type: Spontaneous
  Country: US (occurrence: None)
  Receive Date: 20130212
  Receipt Date: 20130212
  Transmission Date: 20140127
  Serious: Yes (Death)
  Sender: FDA-Public Use
  Company Number: None

PATIENT
  Age: 66 Year
  Sex: Male
  Weight: 62.1 kg

DRUGS (11)
  1. ROMIDEPSIN [Suspect]
     Indication: LUNG CANCER METASTATIC
     Dosage: FOR 3 WEEKS
     Route: 042
     Dates: start: 20130114, end: 20130114
  2. ERLOTINIB [Suspect]
     Indication: LUNG CANCER METASTATIC
     Route: 048
     Dates: start: 20130116, end: 20130120
  3. HYDROCODONE-ACETAMINOPHEN (NORCO) [Concomitant]
  4. POTASSIUM CHLORIDE ER (K-DUR) [Concomitant]
  5. MORPHINE SR (MS CONTIN) [Concomitant]
  6. DIPHENOXYLATE-ATROPINE (LOMOTIL) [Concomitant]
  7. ONDANSETRON (ZOFRAN) [Concomitant]
  8. LOPERAMIDE (IMODIUM) [Concomitant]
  9. CYANOCOBALAMIN (VITAMIN B-12) [Concomitant]
  10. FOLIC ACID [Concomitant]
  11. OXYGEN VIA N/C [Concomitant]

REACTIONS (2)
  - Diarrhoea [None]
  - Non-small cell lung cancer [None]
